FAERS Safety Report 5029815-6 (Version None)
Quarter: 2006Q2

REPORT INFORMATION
  Report Type: 
  Country: None (occurrence: None)
  Receive Date: 20060614
  Receipt Date: 20060609
  Transmission Date: 20061013
  Serious: Yes (Other)
  Sender: FDA-Public Use
  Company Number: 146115USA

PATIENT
  Age: 81 Year
  Sex: Female

DRUGS (11)
  1. DILTIAZEM HCL [Suspect]
     Dosage: 300 MILLIGRAM DAILY ORAL
     Route: 048
     Dates: start: 20050901
  2. ASPIRIN [Concomitant]
  3. PREVACID [Concomitant]
  4. DYAZIDE [Concomitant]
  5. SINGULAIR [Concomitant]
  6. ZOCOR [Concomitant]
  7. NITRO [Concomitant]
  8. ALPHAGAN [Concomitant]
  9. FORMOTEROL [Concomitant]
  10. SPIRIVA [Concomitant]
  11. ALBUTEROL [Concomitant]

REACTIONS (2)
  - PHARMACEUTICAL PRODUCT COMPLAINT [None]
  - TOTAL LUNG CAPACITY DECREASED [None]
